FAERS Safety Report 5801732-0 (Version None)
Quarter: 2008Q3

REPORT INFORMATION
  Report Type: 
  Country: None (occurrence: None)
  Receive Date: 20080707
  Receipt Date: 20080627
  Transmission Date: 20090109
  Serious: Yes (Hospitalization)
  Sender: FDA-Public Use
  Company Number: B0527828A

PATIENT
  Age: 62 Year
  Sex: Female

DRUGS (3)
  1. OMACOR [Suspect]
     Dosage: 4000MG PER DAY
     Route: 048
  2. NORMALIP PRO [Suspect]
     Route: 065
  3. FLUID [Concomitant]
     Route: 065

REACTIONS (3)
  - PANCREATIC ABSCESS [None]
  - PANCREATITIS HAEMORRHAGIC [None]
  - RESPIRATORY FAILURE [None]
